FAERS Safety Report 4361047-7 (Version None)
Quarter: 2004Q2

REPORT INFORMATION
  Report Type: 
  Country: None (occurrence: None)
  Receive Date: 20040519
  Receipt Date: 20040519
  Transmission Date: 20050107
  Serious: Yes (Other)
  Sender: FDA-Public Use
  Company Number: None

PATIENT
  Age: 57 Year
  Sex: Female
  Weight: 74.3899 kg

DRUGS (3)
  1. CPT-11 [Suspect]
     Dosage: Q WEEK X 4 THEN BREAK FOR 2 WKS
  2. FLUOROURACIL [Suspect]
     Dosage: Q WEEK X 4 THEN BREAK FOR 2 WKS
  3. LEUCOVORIN CALCIUM [Suspect]
     Dosage: Q WEEK X 4 THEN BREAK FOR 2 WKS

REACTIONS (1)
  - BREAST CANCER [None]
